FAERS Safety Report 23153925 (Version 1)
Quarter: 2023Q4

REPORT INFORMATION
  Report Type: Spontaneous
  Country: CN (occurrence: CN)
  Receive Date: 20231107
  Receipt Date: 20231107
  Transmission Date: 20240109
  Serious: Yes (Other)
  Sender: FDA-Public Use
  Company Number: CN-BAYER-2023A158916

PATIENT
  Age: 66 Year
  Sex: Male
  Weight: 49 kg

DRUGS (1)
  1. KOVALTRY [Suspect]
     Active Substance: ANTIHEMOPHILIC FACTOR, HUMAN RECOMBINANT
     Indication: Hepatic cancer
     Dosage: 0.2 G, ONCE
     Route: 041
     Dates: start: 20230912, end: 20230912

REACTIONS (2)
  - Hypothyroidism [Unknown]
  - Off label use [None]

NARRATIVE: CASE EVENT DATE: 20230912
